FAERS Safety Report 7486574-5 (Version None)
Quarter: 2011Q2

REPORT INFORMATION
  Report Type: 
  Country: None (occurrence: None)
  Receive Date: 20110516
  Receipt Date: 20110516
  Transmission Date: 20111010
  Serious: No
  Sender: FDA-Public Use
  Company Number: None

PATIENT
  Age: 60 Year
  Sex: Female
  Weight: 89.3586 kg

DRUGS (1)
  1. CYMBALTA [Suspect]
     Dosage: ONE DAILY
     Dates: start: 20110408, end: 20110515

REACTIONS (7)
  - FATIGUE [None]
  - MUSCULOSKELETAL STIFFNESS [None]
  - ARTHRALGIA [None]
  - ASTHENIA [None]
  - DIZZINESS [None]
  - HYPERHIDROSIS [None]
  - ABDOMINAL PAIN UPPER [None]
